FAERS Safety Report 19140078 (Version 1)
Quarter: 2021Q2

REPORT INFORMATION
  Report Type: Report from Study
  Country: US (occurrence: US)
  Receive Date: 20210415
  Receipt Date: 20210415
  Transmission Date: 20210717
  Serious: Yes (Other)
  Sender: FDA-Public Use
  Company Number: US-JNJFOC-20210416406

PATIENT
  Age: 48 Year
  Sex: Male

DRUGS (1)
  1. SPRAVATO [Suspect]
     Active Substance: ESKETAMINE
     Indication: DEPRESSION
     Dosage: 14 TOTAL DOSES
     Dates: start: 20201027

REACTIONS (1)
  - Radiotherapy [Unknown]

NARRATIVE: CASE EVENT DATE: 20210407
